FAERS Safety Report 18313478 (Version 1)
Quarter: 2020Q3

REPORT INFORMATION
  Report Type: Spontaneous
  Country: US (occurrence: US)
  Receive Date: 20200925
  Receipt Date: 20200925
  Transmission Date: 20201103
  Serious: Yes (Other)
  Sender: FDA-Public Use
  Company Number: US-MYLANLABS-2020M1080377

PATIENT
  Age: 59 Year
  Sex: Female

DRUGS (10)
  1. KETAMINE [Suspect]
     Active Substance: KETAMINE
     Indication: DEPRESSION SUICIDAL
     Dosage: 3 DOSES OF ORAL KETAMINE
     Route: 048
  2. KETAMINE [Suspect]
     Active Substance: KETAMINE
     Indication: ANXIETY
     Dosage: 90 MILLIGRAM (60 MIN)
     Route: 042
  3. LAMOTRIGINE. [Concomitant]
     Active Substance: LAMOTRIGINE
     Dosage: 150 MILLIGRAM, QD
  4. LISDEXAMFETAMINE [Concomitant]
     Active Substance: LISDEXAMFETAMINE
     Dosage: 70 MILLIGRAM, QD
  5. KETAMINE [Suspect]
     Active Substance: KETAMINE
     Indication: DEPRESSION SUICIDAL
     Dosage: 35 MILLIGRAM (50MIN)
     Route: 042
  6. KETAMINE [Suspect]
     Active Substance: KETAMINE
     Indication: ANXIETY
  7. DULOXETINE. [Concomitant]
     Active Substance: DULOXETINE
     Dosage: 60 MILLIGRAM, QD
  8. DEXTROAMPHET SACCHARAT, AMPHET ASPARTATE, DEXTROAMPHET SULFATE AND AMPHET SULFAT [Concomitant]
     Active Substance: AMPHETAMINE ASPARTATE\AMPHETAMINE SULFATE\DEXTROAMPHETAMINE SACCHARATE\DEXTROAMPHETAMINE SULFATE
     Dosage: 20 MILLIGRAM, QD
  9. TOPIRAMATE. [Concomitant]
     Active Substance: TOPIRAMATE
     Dosage: 100 MILLIGRAM, QD
  10. TRAZODONE [Concomitant]
     Active Substance: TRAZODONE HYDROCHLORIDE
     Dosage: 100 MILLIGRAM, QD

REACTIONS (3)
  - Euphoric mood [Unknown]
  - Alcoholism [Unknown]
  - Poisoning [Unknown]
